FAERS Safety Report 5282069-8 (Version None)
Quarter: 2007Q1

REPORT INFORMATION
  Report Type: 
  Country: None (occurrence: None)
  Receive Date: 20070330
  Receipt Date: 20070323
  Transmission Date: 20070707
  Serious: Yes (Hospitalization)
  Sender: FDA-Public Use
  Company Number: SK-ABBOTT-07P-260-0361305-00

PATIENT
  Age: 63 Year
  Sex: Female

DRUGS (2)
  1. GOPTEN [Suspect]
     Indication: HYPERTENSION
     Dosage: 1-0-0
     Route: 048
     Dates: start: 20041221, end: 20060117
  2. DIPYRONE TAB [Concomitant]
     Indication: PAIN
     Route: 048

REACTIONS (1)
  - RASH [None]
